FAERS Safety Report 4774334-5 (Version None)
Quarter: 2005Q3

REPORT INFORMATION
  Report Type: 
  Country: None (occurrence: None)
  Receive Date: 20050921
  Receipt Date: 20050909
  Transmission Date: 20060218
  Serious: Yes (Other)
  Sender: FDA-Public Use
  Company Number: CA-JNJFOC-20050902385

PATIENT

DRUGS (3)
  1. REMICADE [Suspect]
  2. REMICADE [Suspect]
     Indication: DRUG USE FOR UNKNOWN INDICATION
  3. IMURAN [Concomitant]

REACTIONS (1)
  - NEONATAL DISORDER [None]
